FAERS Safety Report 12961894 (Version 13)
Quarter: 2019Q2

REPORT INFORMATION
  Report Type: Spontaneous
  Country: US (occurrence: US)
  Receive Date: 20161121
  Receipt Date: 20190426
  Transmission Date: 20190711
  Serious: Yes (Hospitalization, Other)
  Sender: FDA-Public Use
  Company Number: US-PFIZER INC-2016070168

PATIENT
  Age: 82 Year
  Sex: Male
  Weight: 105 kg

DRUGS (10)
  1. LYRICA [Suspect]
     Active Substance: PREGABALIN
     Dosage: 100 MG, 3X/DAY (TAKE 2 CAPSULES BY MOUTH 3 TIMES DAILY)
     Route: 048
  2. LYRICA [Suspect]
     Active Substance: PREGABALIN
     Indication: NEUROPATHY PERIPHERAL
     Dosage: 100 MG, 3X/DAY (50 MG TAKE TWO CAPSULES THREE TIMES)
     Route: 048
     Dates: start: 2006
  3. LYRICA [Suspect]
     Active Substance: PREGABALIN
     Indication: POLYNEUROPATHY
     Dosage: 100 MG, 3X/DAY (TWO CAPSULES)
     Route: 048
     Dates: start: 2012
  4. LYRICA [Suspect]
     Active Substance: PREGABALIN
     Dosage: 100 MG, 2X/DAY (II PO BID)
     Route: 048
  5. LYRICA [Suspect]
     Active Substance: PREGABALIN
     Dosage: 100 MG, 3X/DAY (2 CAPSULES AT 2AM, AND 2 CAPSULES AT 8AM, AND 2 CAPSULES AT 9PM OR 10 PM)
     Route: 048
  6. WARFARIN [Concomitant]
     Active Substance: WARFARIN
     Indication: ANTICOAGULANT THERAPY
     Dosage: 5 MG, UNK (AT NIGHT TIME EVERYDAY EXCEPT ON WEDNESDAY TAKE HALF OF A PILL AT NIGHT)
     Dates: start: 2000
  7. LYRICA [Suspect]
     Active Substance: PREGABALIN
     Dosage: 100 MG, 3X/DAY (TAKE 2 CAPSULES BY MOUTH 3 TIMES DAILY)
     Route: 048
     Dates: start: 20170509
  8. OXYBUTYNIN. [Concomitant]
     Active Substance: OXYBUTYNIN CHLORIDE
     Indication: URINARY INCONTINENCE
     Dosage: 5 MG, 2X/DAY (TAKES ONE IN THE MORNING AND ONE AT NIGHT)(UP TO THREE TIMES DAILY)
  9. LYRICA [Suspect]
     Active Substance: PREGABALIN
     Dosage: 50 MG, 1X/DAY
  10. LYRICA [Suspect]
     Active Substance: PREGABALIN
     Dosage: 50 MG, 3X/DAY

REACTIONS (13)
  - Insomnia [Not Recovered/Not Resolved]
  - Vision blurred [Unknown]
  - Intentional product use issue [Unknown]
  - Gait disturbance [Unknown]
  - Burning sensation [Unknown]
  - Pain [Unknown]
  - Cataract [Unknown]
  - Expired product administered [Unknown]
  - Pain in extremity [Not Recovered/Not Resolved]
  - Prostatic disorder [Recovering/Resolving]
  - Body height decreased [Unknown]
  - Visual impairment [Unknown]
  - Urinary retention [Recovering/Resolving]

NARRATIVE: CASE EVENT DATE: 201710
